FAERS Safety Report 26035186 (Version 2)
Quarter: 2025Q4

REPORT INFORMATION
  Report Type: Spontaneous
  Country: US (occurrence: US)
  Receive Date: 20251112
  Receipt Date: 20251209
  Transmission Date: 20260118
  Serious: No
  Sender: BAYER HEALTHCARE PHARMACEUTICALS INC.
  Company Number: US-BAYER-2025A147313

PATIENT
  Sex: Female

DRUGS (2)
  1. MIRENA [Suspect]
     Active Substance: LEVONORGESTREL
     Indication: Intrauterine contraception
     Dosage: 20?G/DAY
     Route: 015
     Dates: start: 201806
  2. DUPIXENT [Concomitant]
     Active Substance: DUPILUMAB

REACTIONS (5)
  - Nausea [None]
  - Erythema [None]
  - Rash macular [None]
  - Pruritus [None]
  - Dermatitis [None]
